FAERS Safety Report 10202566 (Version 2)
Quarter: 2014Q3

REPORT INFORMATION
  Report Type: Report from Study
  Country: US (occurrence: US)
  Receive Date: 20140528
  Receipt Date: 20140723
  Transmission Date: 20150326
  Serious: Yes (Hospitalization, Other)
  Sender: FDA-Public Use
  Company Number: US-ASTRAZENECA-2014SE35375

PATIENT
  Age: 61 Year
  Sex: Female
  Weight: 43.1 kg

DRUGS (30)
  1. LASIX [Concomitant]
     Active Substance: FUROSEMIDE
     Indication: DIURETIC THERAPY
     Route: 048
  2. DITROPAN [Concomitant]
     Active Substance: OXYBUTYNIN CHLORIDE
     Indication: BLADDER SPASM
     Route: 048
  3. CREON [Concomitant]
     Active Substance: PANCRELIPASE AMYLASE\PANCRELIPASE LIPASE\PANCRELIPASE PROTEASE
     Indication: ENZYME SUPPLEMENTATION
  4. NIASTATIN TRIMCIN CR D N [Concomitant]
     Indication: SKIN INFECTION
     Dosage: 30MG TID PRN
     Route: 061
  5. PROAIR HFA [Concomitant]
     Active Substance: ALBUTEROL SULFATE
     Indication: ASTHMA
     Dosage: 90 MCG PRN
     Route: 055
  6. PLAVIX [Concomitant]
     Active Substance: CLOPIDOGREL BISULFATE
     Indication: ANTIPLATELET THERAPY
     Route: 048
  7. FENTANYL. [Concomitant]
     Active Substance: FENTANYL
     Indication: PAIN
     Dosage: 75MCG E
     Route: 061
  8. SEROQUEL [Suspect]
     Active Substance: QUETIAPINE FUMARATE
     Route: 048
  9. NEXIUM [Suspect]
     Active Substance: ESOMEPRAZOLE MAGNESIUM
     Indication: GASTROOESOPHAGEAL REFLUX DISEASE
     Route: 048
  10. FERROUS SULFATE [Concomitant]
     Active Substance: FERROUS SULFATE\FERROUS SULFATE, DRIED
     Indication: PERNICIOUS ANAEMIA
     Route: 048
  11. FLEXARIL [Concomitant]
     Indication: MUSCULAR DYSTROPHY
     Dosage: 10MG EVERY 4 HRS PRN
     Route: 048
  12. NITROFURANT [Concomitant]
     Indication: PROPHYLAXIS URINARY TRACT INFECTION
     Route: 048
  13. LIPITOR [Concomitant]
     Active Substance: ATORVASTATIN CALCIUM
     Indication: BLOOD CHOLESTEROL ABNORMAL
     Route: 048
  14. METFORMIN [Concomitant]
     Active Substance: METFORMIN HYDROCHLORIDE
     Indication: DIABETES MELLITUS
     Route: 048
     Dates: start: 2013
  15. B+O SUPPOSITORY [Concomitant]
     Indication: BLADDER PAIN
     Dosage: 16.5/30 EVERY 6 HR PRN
     Route: 050
  16. RESTASIS [Concomitant]
     Active Substance: CYCLOSPORINE
     Indication: DRY EYE
     Dosage: 1 DROP EACH EYE DAILY
     Route: 061
  17. VAG C CR [Concomitant]
     Indication: VAGINAL DISORDER
     Dosage: 3 TIMES A WEEK HS
     Route: 061
  18. ATENOLOL. [Suspect]
     Active Substance: ATENOLOL
     Indication: CARDIAC DISORDER
     Route: 048
  19. DIGOXIN. [Concomitant]
     Active Substance: DIGOXIN
     Indication: CARDIAC DISORDER
     Route: 048
  20. KCL [Concomitant]
     Active Substance: POTASSIUM CHLORIDE
     Indication: MINERAL SUPPLEMENTATION
     Dosage: 10MEQ 750MG BID
     Route: 048
  21. VITAMIN B12 SHOTS [Concomitant]
     Indication: PERNICIOUS ANAEMIA
     Dosage: 1MG/ML BIMO
     Route: 058
  22. ESTRADIOL. [Concomitant]
     Active Substance: ESTRADIOL
     Indication: HORMONE THERAPY
     Route: 061
  23. NITRO [Concomitant]
     Active Substance: NITROGLYCERIN
     Indication: CHEST PAIN
     Dosage: 0.4MG Q5MINS PRN
     Route: 050
  24. L-THYROX [Concomitant]
     Indication: THYROID DISORDER
     Route: 048
  25. NASONEX [Concomitant]
     Active Substance: MOMETASONE FUROATE
     Indication: DYSPNOEA
     Route: 045
  26. ZANTAC [Concomitant]
     Active Substance: RANITIDINE HYDROCHLORIDE
     Indication: GASTROOESOPHAGEAL REFLUX DISEASE
     Route: 048
     Dates: start: 2014
  27. VISTARIL [Concomitant]
     Active Substance: HYDROXYZINE PAMOATE
     Indication: NAUSEA
     Dosage: 4 TO 6 HOURS PRN, 50MG 2 TABLETS
     Route: 048
  28. ZOFRAN [Concomitant]
     Active Substance: ONDANSETRON HYDROCHLORIDE
     Indication: NAUSEA
     Dosage: 8MG EVERY 4-6 HRS, PRN
     Route: 048
  29. SIMVASTATIN. [Concomitant]
     Active Substance: SIMVASTATIN
     Route: 048
  30. VICODIN [Concomitant]
     Active Substance: ACETAMINOPHEN\HYDROCODONE BITARTRATE
     Indication: PAIN
     Dosage: 10/325MG, QID
     Route: 048

REACTIONS (13)
  - Muscular dystrophy [Unknown]
  - Cataract [Recovered/Resolved]
  - Weight decreased [Not Recovered/Not Resolved]
  - Throat irritation [Not Recovered/Not Resolved]
  - Neurogenic bladder [Unknown]
  - Drug hypersensitivity [Not Recovered/Not Resolved]
  - Aphagia [Not Recovered/Not Resolved]
  - Diabetes mellitus [Not Recovered/Not Resolved]
  - Lacrimation decreased [Not Recovered/Not Resolved]
  - Intentional product misuse [Recovered/Resolved]
  - Drug dose omission [Unknown]
  - Brain neoplasm [Not Recovered/Not Resolved]
  - Vomiting [Not Recovered/Not Resolved]
